FAERS Safety Report 8327102-1 (Version None)
Quarter: 2012Q2

REPORT INFORMATION
  Report Type: 
  Country: None (occurrence: None)
  Receive Date: 20120501
  Receipt Date: 20120305
  Transmission Date: 20120825
  Serious: No
  Sender: FDA-Public Use
  Company Number: US-SANOFI-AVENTIS-2012SA015040

PATIENT
  Age: 69 Year
  Sex: Female

DRUGS (2)
  1. APIDRA [Suspect]
     Dosage: ON SLIDING SCALE WITH MEALS
     Route: 058
  2. SOLOSTAR [Suspect]

REACTIONS (1)
  - HEPATIC ENZYME INCREASED [None]
